FAERS Safety Report 8972005 (Version 1)
Quarter: 2012Q4

REPORT INFORMATION
  Report Type: 
  Country: DE (occurrence: DE)
  Receive Date: 20121219
  Receipt Date: 20121219
  Transmission Date: 20130627
  Serious: Yes (Death, Other)
  Sender: FDA-Public Use
  Company Number: DE-JNJFOC-20121206560

PATIENT

DRUGS (23)
  1. DOXORUBICIN [Suspect]
     Indication: B-CELL LYMPHOMA
     Dosage: on day 1 in CHOEP-14 and R-CHOEP-14 for 8 cycles
     Route: 042
  2. DOXORUBICIN [Suspect]
     Indication: B-CELL LYMPHOMA
     Dosage: on day 1 in MegaCHOEP-14 and R-MegaCHOEP-14
     Route: 042
  3. CYCLOPHOSPHAMIDE [Suspect]
     Indication: B-CELL LYMPHOMA
     Dosage: on day 1 in MegaCHOEP and R-MegaCHOEP-14 in cycle 4
     Route: 065
  4. CYCLOPHOSPHAMIDE [Suspect]
     Indication: B-CELL LYMPHOMA
     Dosage: on day 1 in CHOEP-14 and R-CHOEP-14 for 8 cycles
     Route: 065
  5. CYCLOPHOSPHAMIDE [Suspect]
     Indication: B-CELL LYMPHOMA
     Dosage: on day 1 in MegaCHOEP and R-MegaCHOEP-14 in cycle 2 and 3
     Route: 065
  6. CYCLOPHOSPHAMIDE [Suspect]
     Indication: B-CELL LYMPHOMA
     Dosage: on day 1 in MegaCHOEP and R-MegaCHOEP-14 in cycle 1
     Route: 065
  7. VINCRISTINE [Suspect]
     Indication: B-CELL LYMPHOMA
     Dosage: on day 1 in CHOEP-14 and R-CHOEP-14 for 8 cycles and on day 1 in MegaCHOEP-14 and R-MegaCHOEP-14
     Route: 065
  8. ETOPOSIDE [Suspect]
     Indication: B-CELL LYMPHOMA
     Dosage: on days 1-3 in MegaCHOEP-14 and R-MegaCHOEP-14 in cycle 4
     Route: 065
  9. ETOPOSIDE [Suspect]
     Indication: B-CELL LYMPHOMA
     Dosage: on days 1-3 in MegaCHOEP-14 and R-MegaCHOEP-14 in cycles 2 and 3
     Route: 065
  10. ETOPOSIDE [Suspect]
     Indication: B-CELL LYMPHOMA
     Dosage: on days 1-3 in CHOEP-14 and R-CHOEP-14 for 8 cycles
     Route: 065
  11. ETOPOSIDE [Suspect]
     Indication: B-CELL LYMPHOMA
     Dosage: on days 1-3 in MegaCHOEP-14 and R-MegaCHOEP-14 in cycle 1
     Route: 065
  12. PREDNISONE [Suspect]
     Indication: B-CELL LYMPHOMA
     Dosage: on days 1-5 in CHOEP-14 and R-CHOEP-14 for 8 cycles and in MegaCHOEP-14 and R-MegaCHOEP-14
     Route: 065
  13. RITUXIMAB [Suspect]
     Indication: B-CELL LYMPHOMA
     Dosage: on day 0 of cycles 1-4, 6, 8 of the R-CHOEP-14 and on days 0,14, 36, 56, 77, 98 in R-MegaCHOEP-14
     Route: 065
  14. RITUXIMAB [Suspect]
     Indication: B-CELL LYMPHOMA
     Dosage: on day 0 ofc ycles 1-4, 6, and 8 of the R-CHOEP-14 for 8 cycles
     Route: 065
  15. RADIOTHERAPY [Suspect]
     Indication: B-CELL LYMPHOMA
     Dosage: 36 Gy, administered at daily doses of 1.8 to 2 Gy over 4 weeks
     Route: 065
  16. METHOTREXATE [Suspect]
     Indication: B-CELL LYMPHOMA
     Dosage: on day 1 and day 5 of each treatment cycle
     Route: 065
  17. CYTOSINE [Suspect]
     Indication: B-CELL LYMPHOMA
     Dosage: on day 1 and day 5 of each treatment cycle
     Route: 065
  18. DEXAMETHASONE [Suspect]
     Indication: B-CELL LYMPHOMA
     Dosage: on day 1 and day 5 of each treatment cycle
     Route: 037
  19. METHOTREXATE [Suspect]
     Indication: PROPHYLAXIS
     Dosage: on day 1 and day 5 of cycle 1 and 2
     Route: 037
  20. METHOTREXATE [Suspect]
     Indication: B-CELL LYMPHOMA
     Dosage: on day 1 and day 5 of cycle 1 and 2
     Route: 037
  21. LEUCOVORIN [Suspect]
     Indication: B-CELL LYMPHOMA
     Route: 065
  22. GRANULOCYTE COLONY STIMULATING FACTOR [Suspect]
     Indication: PROPHYLAXIS
     Route: 065
  23. GRANULOCYTE COLONY STIMULATING FACTOR [Suspect]
     Indication: PROPHYLAXIS
     Dosage: started on day 6 after cycle 1
     Route: 065

REACTIONS (15)
  - Death [Fatal]
  - Thrombocytopenia [Unknown]
  - B-cell lymphoma [Unknown]
  - Neoplasm malignant [Unknown]
  - Mental disorder [Unknown]
  - Toxicity to various agents [Unknown]
  - Leukopenia [Unknown]
  - Anaemia [Unknown]
  - Mucosal inflammation [Unknown]
  - Infection [Unknown]
  - Nausea [Unknown]
  - Diarrhoea [Unknown]
  - Vomiting [Unknown]
  - Arrhythmia [Unknown]
  - Peripheral sensory neuropathy [Unknown]
